FAERS Safety Report 22108870 (Version 1)
Quarter: 2023Q1

REPORT INFORMATION
  Report Type: Spontaneous
  Country: US (occurrence: None)
  Receive Date: 20230316
  Receipt Date: 20230316
  Transmission Date: 20230417
  Serious: Yes (Other)
  Sender: FDA-Public Use
  Company Number: None

PATIENT
  Age: 51 Year
  Sex: Male
  Weight: 87.75 kg

DRUGS (1)
  1. EQUATE ARTIFICIAL TEARS [Suspect]
     Active Substance: POLYVINYL ALCOHOL\POVIDONE

REACTIONS (2)
  - Pneumonia [None]
  - Eye injury [None]

NARRATIVE: CASE EVENT DATE: 20220518
